FAERS Safety Report 24304437 (Version 4)
Quarter: 2024Q4

REPORT INFORMATION
  Report Type: Spontaneous
  Country: US (occurrence: US)
  Receive Date: 20240910
  Receipt Date: 20241122
  Transmission Date: 20250114
  Serious: No
  Sender: KARYOPHARM THERAPEUTICS
  Company Number: US-KARYOPHARM-2024KPT001518

PATIENT

DRUGS (9)
  1. XPOVIO [Suspect]
     Active Substance: SELINEXOR
     Indication: Plasma cell myeloma refractory
     Dosage: 100 MG, WEEKLY
     Route: 048
     Dates: start: 202409, end: 2024
  2. XPOVIO [Suspect]
     Active Substance: SELINEXOR
     Dosage: 80 MG, WEEKLY
     Route: 048
     Dates: start: 2024, end: 2024
  3. ACYCLOVIR [Concomitant]
     Active Substance: ACYCLOVIR
  4. CYCLOBENZAPRINE [Concomitant]
     Active Substance: CYCLOBENZAPRINE
  5. DEXAMETHASONE [Concomitant]
     Active Substance: DEXAMETHASONE
  6. ELIQUIS [Concomitant]
     Active Substance: APIXABAN
  7. INSULIN ASPART [Concomitant]
     Active Substance: INSULIN ASPART
  8. LORATADINE [Concomitant]
     Active Substance: LORATADINE
  9. PROCHLORPERAZINE MALEATE [Concomitant]
     Active Substance: PROCHLORPERAZINE MALEATE

REACTIONS (7)
  - Plasma cell myeloma [Unknown]
  - Nausea [Unknown]
  - Diarrhoea [Unknown]
  - Fatigue [Not Recovered/Not Resolved]
  - Dehydration [Unknown]
  - Asthenia [Unknown]
  - Drug ineffective [Unknown]

NARRATIVE: CASE EVENT DATE: 20240101
